FAERS Safety Report 19673561 (Version 1)
Quarter: 2021Q3

REPORT INFORMATION
  Report Type: Spontaneous
  Country: US (occurrence: US)
  Receive Date: 20210809
  Receipt Date: 20210809
  Transmission Date: 20211014
  Serious: No
  Sender: FDA-Public Use
  Company Number: US-SA-2021SA260500

PATIENT
  Sex: Female

DRUGS (6)
  1. CIMZIA [Concomitant]
     Active Substance: CERTOLIZUMAB PEGOL
  2. SULFASALAZINE. [Concomitant]
     Active Substance: SULFASALAZINE
  3. REMICADE [Concomitant]
     Active Substance: INFLIXIMAB
  4. ARAVA [Suspect]
     Active Substance: LEFLUNOMIDE
  5. ENBREL [Concomitant]
     Active Substance: ETANERCEPT
  6. ERYTHROMYCIN. [Concomitant]
     Active Substance: ERYTHROMYCIN

REACTIONS (1)
  - Alopecia [Unknown]
